APPROVED DRUG PRODUCT: MULTIHANCE MULTIPACK
Active Ingredient: GADOBENATE DIMEGLUMINE
Strength: 26.45GM/50ML (529MG/ML)
Dosage Form/Route: INJECTABLE;INTRAVENOUS
Application: N021358 | Product #001
Applicant: BRACCO DIAGNOSTICS INC
Approved: Nov 23, 2004 | RLD: Yes | RS: Yes | Type: RX